FAERS Safety Report 10070052 (Version 1)
Quarter: 2014Q2

REPORT INFORMATION
  Report Type: Spontaneous
  Country: US (occurrence: None)
  Receive Date: 20140409
  Receipt Date: 20140409
  Transmission Date: 20141212
  Serious: Yes (Hospitalization)
  Sender: FDA-Public Use
  Company Number: None

PATIENT
  Age: 63 Year
  Sex: Male
  Weight: 85.73 kg

DRUGS (3)
  1. INTERFERON [Suspect]
     Indication: MALIGNANT MELANOMA
     Route: 042
     Dates: start: 20140407, end: 20140407
  2. IPILIMUMAB [Suspect]
     Indication: MALIGNANT MELANOMA
     Route: 042
     Dates: start: 20140407, end: 20140407
  3. INTERFERON 20MU/M2 [Concomitant]

REACTIONS (5)
  - Erythema [None]
  - Oedema [None]
  - Unresponsive to stimuli [None]
  - Pyrexia [None]
  - Heart rate increased [None]
